FAERS Safety Report 19763909 (Version 1)
Quarter: 2021Q3

REPORT INFORMATION
  Report Type: Spontaneous
  Country: US (occurrence: US)
  Receive Date: 20210830
  Receipt Date: 20210830
  Transmission Date: 20211014
  Serious: No
  Sender: FDA-Public Use
  Company Number: US-ORGANON-O2108USA001258

PATIENT
  Sex: Female
  Weight: 57.6 kg

DRUGS (1)
  1. NEXPLANON [Suspect]
     Active Substance: ETONOGESTREL
     Indication: CONTRACEPTION
     Dosage: 1 ROD FOR 5 YEARS, RIGHT ARM
     Route: 059
     Dates: start: 20200528

REACTIONS (2)
  - Amenorrhoea [Recovered/Resolved]
  - Product prescribing error [Unknown]
